FAERS Safety Report 7292314-5 (Version None)
Quarter: 2011Q1

REPORT INFORMATION
  Report Type: 
  Country: None (occurrence: None)
  Receive Date: 20110202
  Receipt Date: 20110126
  Transmission Date: 20110831
  Serious: Yes (Hospitalization)
  Sender: FDA-Public Use
  Company Number: 2011SP003967

PATIENT
  Age: 69 Year
  Sex: Male

DRUGS (2)
  1. REBETOL [Suspect]
     Indication: HEPATITIS C
     Dosage: ; PO
     Route: 048
     Dates: start: 20110111, end: 20110115
  2. INTERFERON [Suspect]
     Indication: HEPATITIS C
     Dosage: 6 MIU; ; IV
     Route: 042
     Dates: start: 20110111, end: 20110115

REACTIONS (1)
  - MENINGITIS [None]
